FAERS Safety Report 16027821 (Version 5)
Quarter: 2020Q3

REPORT INFORMATION
  Report Type: Spontaneous
  Country: CA (occurrence: CA)
  Receive Date: 20190304
  Receipt Date: 20200803
  Transmission Date: 20201102
  Serious: Yes (Other)
  Sender: FDA-Public Use
  Company Number: CA-TEVA-2019-CA-1019206

PATIENT
  Age: 66 Year
  Sex: Female

DRUGS (16)
  1. HUMIRA [Suspect]
     Active Substance: ADALIMUMAB
     Indication: RHEUMATOID ARTHRITIS
     Route: 058
  2. ORENCIA [Suspect]
     Active Substance: ABATACEPT
     Indication: PRODUCT USED FOR UNKNOWN INDICATION
     Route: 042
  3. RITUXIMAB. [Concomitant]
     Active Substance: RITUXIMAB
     Route: 065
  4. FOLIC ACID. [Concomitant]
     Active Substance: FOLIC ACID
     Route: 065
  5. ASPIRIN. [Concomitant]
     Active Substance: ASPIRIN
     Indication: PRODUCT USED FOR UNKNOWN INDICATION
     Route: 065
  6. PANTOPRAZOLE SODIUM ANHYDROUS [Concomitant]
     Active Substance: PANTOPRAZOLE SODIUM ANHYDROUS
     Route: 065
  7. SALBUTAMOL [Concomitant]
     Active Substance: ALBUTEROL
     Route: 065
  8. SULFASALAZINE. [Concomitant]
     Active Substance: SULFASALAZINE
     Route: 065
  9. FLOVENT [Concomitant]
     Active Substance: FLUTICASONE PROPIONATE
     Indication: PRODUCT USED FOR UNKNOWN INDICATION
     Route: 065
  10. METHOTREXATE. [Suspect]
     Active Substance: METHOTREXATE
     Indication: PRODUCT USED FOR UNKNOWN INDICATION
     Route: 065
  11. ORENCIA [Suspect]
     Active Substance: ABATACEPT
     Route: 065
  12. ACTEMRA [Suspect]
     Active Substance: TOCILIZUMAB
     Indication: RHEUMATOID ARTHRITIS
     Route: 065
  13. ROSUVASTATIN CALCIUM. [Concomitant]
     Active Substance: ROSUVASTATIN CALCIUM
  14. ERGOCALCIFEROL. [Concomitant]
     Active Substance: ERGOCALCIFEROL
     Indication: PRODUCT USED FOR UNKNOWN INDICATION
  15. METRONIDAZOLE. [Concomitant]
     Active Substance: METRONIDAZOLE
     Indication: PRODUCT USED FOR UNKNOWN INDICATION
     Route: 065
  16. ENBREL [Suspect]
     Active Substance: ETANERCEPT
     Indication: RHEUMATOID ARTHRITIS
     Route: 058

REACTIONS (12)
  - Pruritus [Unknown]
  - Bone erosion [Unknown]
  - Hepatitis [Unknown]
  - Red blood cell sedimentation rate abnormal [Unknown]
  - Burning sensation [Unknown]
  - Hypersensitivity [Unknown]
  - C-reactive protein abnormal [Unknown]
  - Rheumatoid factor positive [Unknown]
  - Drug hypersensitivity [Unknown]
  - Dermatitis allergic [Unknown]
  - Liver disorder [Unknown]
  - Rash [Unknown]
